FAERS Safety Report 12105409 (Version 8)
Quarter: 2017Q2

REPORT INFORMATION
  Report Type: Report from Study
  Country: FR (occurrence: FR)
  Receive Date: 20160223
  Receipt Date: 20170421
  Transmission Date: 20170829
  Serious: Yes (Death, Life-Threatening, Hospitalization)
  Sender: FDA-Public Use
  Company Number: PHHO2016FR002688

PATIENT
  Age: 71 Year
  Sex: Male
  Weight: 71 kg

DRUGS (10)
  1. ELTROMBOPAG [Suspect]
     Active Substance: ELTROMBOPAG
     Indication: CHRONIC MYELOMONOCYTIC LEUKAEMIA
     Dosage: 50 MG, UNK
     Route: 048
     Dates: start: 20160106, end: 20160119
  2. ATARAX [Concomitant]
     Active Substance: HYDROXYZINE HYDROCHLORIDE
     Indication: PRURITUS
     Dosage: 25 MG, UNK
     Route: 048
     Dates: start: 20160203
  3. DOMPERIDONE [Concomitant]
     Active Substance: DOMPERIDONE
     Indication: NAUSEA
     Dosage: UNK
     Route: 048
  4. POLARAMINE [Concomitant]
     Active Substance: DEXCHLORPHENIRAMINE MALEATE
     Indication: PRURITUS
     Dosage: 2 MG, UNK
     Route: 048
     Dates: start: 20151028
  5. ROMIPLOSTIM [Concomitant]
     Active Substance: ROMIPLOSTIM
     Indication: PRODUCT USED FOR UNKNOWN INDICATION
     Route: 065
  6. ELTROMBOPAG [Suspect]
     Active Substance: ELTROMBOPAG
     Dosage: 150 MG, UNK
     Route: 048
     Dates: start: 20160203, end: 20160209
  7. ELTROMBOPAG [Suspect]
     Active Substance: ELTROMBOPAG
     Indication: THROMBOCYTOPENIA
     Dosage: 100 MG, UNK
     Route: 048
     Dates: start: 20160120, end: 20160202
  8. SOMATULINE [Concomitant]
     Active Substance: LANREOTIDE ACETATE
     Indication: PRODUCT USED FOR UNKNOWN INDICATION
     Dosage: 90 MG, EVERY 3 WEEKS
     Route: 065
     Dates: start: 20160519
  9. EXOMUC [Concomitant]
     Active Substance: ACETYLCYSTEINE
     Indication: BRONCHIAL OBSTRUCTION
     Dosage: UNK
     Route: 048
  10. TANGANIL [Concomitant]
     Active Substance: ACETYLLEUCINE
     Indication: DIZZINESS
     Dosage: 1 G, UNK
     Route: 048
     Dates: start: 20150717, end: 20160122

REACTIONS (8)
  - Mallory-Weiss syndrome [Recovered/Resolved]
  - Peritoneal haemorrhage [Not Recovered/Not Resolved]
  - Drug-induced liver injury [Recovered/Resolved]
  - Tumour lysis syndrome [Unknown]
  - Oesophagitis [Recovering/Resolving]
  - Splenic rupture [Not Recovered/Not Resolved]
  - Escherichia sepsis [Recovered/Resolved]
  - Chronic myelomonocytic leukaemia [Fatal]

NARRATIVE: CASE EVENT DATE: 20160210
